FAERS Safety Report 11152491 (Version 1)
Quarter: 2015Q2

REPORT INFORMATION
  Report Type: Report from Study
  Country: FR (occurrence: FR)
  Receive Date: 20150601
  Receipt Date: 20150601
  Transmission Date: 20150821
  Serious: Yes (Hospitalization, Other)
  Sender: FDA-Public Use
  Company Number: FR-GLAXOSMITHKLINE-FR2015GSK073554

PATIENT
  Age: 48 Year
  Sex: Male

DRUGS (19)
  1. KARDEGIC [Concomitant]
     Active Substance: ASPIRIN LYSINE
  2. COVERSYL [Concomitant]
     Active Substance: PERINDOPRIL
  3. NOVORAPID [Concomitant]
     Active Substance: INSULIN ASPART
  4. LASILIX [Concomitant]
     Active Substance: FUROSEMIDE
  5. CARDENSIEL [Concomitant]
     Active Substance: BISOPROLOL FUMARATE
  6. DIFFU K [Concomitant]
     Active Substance: POTASSIUM CHLORIDE
  7. OMEGA-3-ACID ETHYL ESTERS. [Suspect]
     Active Substance: OMEGA-3-ACID ETHYL ESTERS
     Indication: ISCHAEMIC HEART DISEASE PROPHYLAXIS
     Dosage: UNK
     Dates: start: 20090313
  8. ALDACTONE [Concomitant]
     Active Substance: SPIRONOLACTONE
  9. REVLIMID [Concomitant]
     Active Substance: LENALIDOMIDE
  10. EXJADE [Concomitant]
     Active Substance: DEFERASIROX
  11. PLAVIX [Concomitant]
     Active Substance: CLOPIDOGREL BISULFATE
  12. TAHOR [Concomitant]
     Active Substance: ATORVASTATIN CALCIUM
  13. TRIATEC [Concomitant]
     Active Substance: RAMIPRIL
  14. MOPRAL [Concomitant]
     Active Substance: OMEPRAZOLE SODIUM
  15. INSPRA [Concomitant]
     Active Substance: EPLERENONE
  16. TEMERIT [Concomitant]
     Active Substance: NEBIVOLOL
  17. BISOPROLOL [Concomitant]
     Active Substance: BISOPROLOL
  18. STAGID [Concomitant]
     Active Substance: METFORMIN PAMOATE
  19. LEVEMIR [Concomitant]
     Active Substance: INSULIN DETEMIR

REACTIONS (1)
  - Insulin-requiring type 2 diabetes mellitus [Unknown]

NARRATIVE: CASE EVENT DATE: 20140507
